FAERS Safety Report 19872781 (Version 1)
Quarter: 2021Q3

REPORT INFORMATION
  Report Type: Spontaneous
  Country: US (occurrence: US)
  Receive Date: 20210922
  Receipt Date: 20210922
  Transmission Date: 20211014
  Serious: Yes (Hospitalization, Other)
  Sender: FDA-Public Use
  Company Number: None

PATIENT
  Sex: Male

DRUGS (1)
  1. KRATOM [Suspect]
     Active Substance: HERBALS\MITRAGYNINE

REACTIONS (5)
  - Hepatic failure [None]
  - Abdominal pain upper [None]
  - Overdose [None]
  - Chromaturia [None]
  - Hyperhidrosis [None]
